FAERS Safety Report 5477763-X (Version None)
Quarter: 2007Q3

REPORT INFORMATION
  Report Type: 
  Country: None (occurrence: None)
  Receive Date: 20070831
  Receipt Date: 20070522
  Transmission Date: 20080115
  Serious: No
  Sender: FDA-Public Use
  Company Number: PHEH2007US05684

PATIENT
  Age: 10 Year
  Sex: Male

DRUGS (2)
  1. EXJADE [Suspect]
     Indication: SICKLE CELL ANAEMIA
     Dosage: 500 MG, QD, ORAL; QD, ORAL
     Route: 048
     Dates: start: 20070101, end: 20070101
  2. EXJADE [Suspect]
     Indication: SICKLE CELL ANAEMIA
     Dosage: 500 MG, QD, ORAL; QD, ORAL
     Route: 048
     Dates: start: 20070301

REACTIONS (2)
  - ABDOMINAL PAIN [None]
  - DYSGEUSIA [None]
